FAERS Safety Report 9842448 (Version 3)
Quarter: 2015Q3

REPORT INFORMATION
  Report Type: Spontaneous
  Country: US (occurrence: US)
  Receive Date: 20140124
  Receipt Date: 20150730
  Transmission Date: 20151125
  Serious: No
  Sender: FDA-Public Use
  Company Number: US-GILEAD-2011-0039891

PATIENT
  Age: 52 Year
  Sex: Male

DRUGS (14)
  1. FLOMAX [Concomitant]
     Active Substance: TAMSULOSIN HYDROCHLORIDE
  2. B-100 COMPLEX [Concomitant]
     Active Substance: DEXPANTHENOL\NIACINAMIDE\PYRIDOXINE HYDROCHLORIDE\RIBOFLAVIN 5^-PHOSPHATE SODIUM\THIAMINE HYDROCHLORIDE
  3. FISH OIL [Concomitant]
     Active Substance: FISH OIL
  4. LISINOPRIL. [Concomitant]
     Active Substance: LISINOPRIL
  5. FEXOFENADINE [Concomitant]
     Active Substance: FEXOFENADINE\FEXOFENADINE HYDROCHLORIDE
  6. RANEXA [Suspect]
     Active Substance: RANOLAZINE
     Indication: ANGINA PECTORIS
     Dates: end: 20110520
  7. FENTANYL. [Concomitant]
     Active Substance: FENTANYL
  8. VALIUM [Concomitant]
     Active Substance: DIAZEPAM
  9. FLUTICASONE [Concomitant]
     Active Substance: FLUTICASONE\FLUTICASONE PROPIONATE
  10. FENOFIBRATE. [Concomitant]
     Active Substance: FENOFIBRATE
  11. ATENOLOL. [Concomitant]
     Active Substance: ATENOLOL
  12. VITAMIN E [Concomitant]
     Active Substance: .ALPHA.-TOCOPHEROL
  13. ASPIRIN. [Concomitant]
     Active Substance: ASPIRIN
  14. ULORIC [Concomitant]
     Active Substance: FEBUXOSTAT

REACTIONS (1)
  - Dysuria [Recovered/Resolved]
